FAERS Safety Report 8846470 (Version 1)
Quarter: 2012Q4

REPORT INFORMATION
  Report Type: 
  Country: GB (occurrence: GB)
  Receive Date: 20121017
  Receipt Date: 20121017
  Transmission Date: 20130627
  Serious: Yes (Hospitalization)
  Sender: FDA-Public Use
  Company Number: GB-PFIZER INC-2012254513

PATIENT
  Age: 40 Year
  Sex: Female
  Weight: 45.5 kg

DRUGS (3)
  1. GENOTROPIN [Suspect]
     Indication: GROWTH HORMONE DEFICIENCY
     Dosage: 0.93 mg, 7/wk
     Route: 058
     Dates: start: 20000224
  2. MICROGYNON [Concomitant]
     Indication: CONTRACEPTION
     Dosage: UNK
     Dates: start: 19790115
  3. HYDROCORTISONE [Concomitant]
     Indication: BLOOD CORTICOTROPHIN DECREASED
     Dosage: UNK
     Dates: start: 19790615

REACTIONS (1)
  - Arthropathy [Recovered/Resolved]
